FAERS Safety Report 9744977 (Version 1)
Quarter: 2013Q4

REPORT INFORMATION
  Report Type: Report from Study
  Country: US (occurrence: US)
  Receive Date: 20131211
  Receipt Date: 20131211
  Transmission Date: 20140711
  Serious: Yes (Death)
  Sender: FDA-Public Use
  Company Number: US-ROCHE-1318090

PATIENT
  Sex: Male

DRUGS (21)
  1. AVASTIN [Suspect]
     Indication: PANCREATIC CARCINOMA
     Route: 042
     Dates: start: 20120605, end: 20120605
  2. AVASTIN [Suspect]
     Indication: HEPATIC CANCER
     Route: 042
     Dates: start: 20120619, end: 20120619
  3. AVASTIN [Suspect]
     Route: 042
     Dates: start: 20120712, end: 20120712
  4. AVASTIN [Suspect]
     Route: 042
     Dates: start: 20120813, end: 20120813
  5. ATROPINE [Concomitant]
     Dosage: 0.4 MG /ML, INTRAVENOUS PUSH ONE TIME, ADMINISTER OVER 5MINUTES
     Route: 042
     Dates: start: 20120530, end: 20120530
  6. ATROPINE [Concomitant]
     Dosage: 0.4 MG /ML, INTRAVENOUS PUSH ONE TIME, ADMINISTER OVER 5MINUTES
     Route: 042
     Dates: start: 20120605, end: 20120605
  7. ATROPINE [Concomitant]
     Dosage: 0.5 MG /ML, INTRAVENOUS PUSH ONE TIME, ADMINISTER OVER 4 MINUTES
     Route: 042
     Dates: start: 20120619, end: 20120619
  8. ATROPINE [Concomitant]
     Dosage: 0.4 MG /ML, INTRAVENOUS PUSH ONE TIME, ADMINISTER OVER 5MINUTES
     Route: 042
     Dates: start: 20120626, end: 20120626
  9. ATROPINE [Concomitant]
     Dosage: 0.4 MG /ML, INTRAVENOUS PUSH ONE TIME, ADMINISTER OVER 5MINUTES
     Route: 042
     Dates: start: 20120712, end: 20120712
  10. ATROPINE [Concomitant]
     Dosage: 0.4 MG /ML, INTRAVENOUS PUSH ONE TIME, ADMINISTER OVER 5 MINUTES
     Route: 042
     Dates: start: 20120719, end: 20120719
  11. ATROPINE [Concomitant]
     Dosage: 0.4 MG /ML, INTRAVENOUS PUSH ONE TIME, ADMINISTER OVER 5 MINUTES
     Route: 042
     Dates: start: 20120820, end: 20120820
  12. IRINOTECAN [Concomitant]
  13. TAXOTERE [Concomitant]
  14. ERBITUX [Concomitant]
     Dosage: INFUSED OVER 1 HR
     Route: 042
     Dates: start: 20120619, end: 20120619
  15. ERBITUX [Concomitant]
     Dosage: INFUSED OVER 1 HR
     Route: 042
     Dates: start: 20120530, end: 20120530
  16. ERBITUX [Concomitant]
     Dosage: INFUSED OVER 1 HR
     Route: 042
     Dates: start: 20120712, end: 20120712
  17. ERBITUX [Concomitant]
     Dosage: INFUSED OVER 1 HR
     Route: 042
     Dates: start: 20120813, end: 20120813
  18. NACL .9% [Concomitant]
     Route: 042
     Dates: start: 20120605, end: 20120605
  19. NACL .9% [Concomitant]
     Route: 042
     Dates: start: 20120619, end: 20120619
  20. NACL .9% [Concomitant]
     Route: 042
     Dates: start: 20120712, end: 20120712
  21. NACL .9% [Concomitant]
     Route: 042
     Dates: start: 20120813, end: 20120813

REACTIONS (1)
  - Death [Fatal]
